FAERS Safety Report 24629467 (Version 2)
Quarter: 2025Q1

REPORT INFORMATION
  Report Type: Spontaneous
  Country: SE (occurrence: SE)
  Receive Date: 20241118
  Receipt Date: 20250107
  Transmission Date: 20250409
  Serious: Yes (Other)
  Sender: ALEXION PHARMACEUTICALS
  Company Number: None

PATIENT
  Age: 44 Year

DRUGS (16)
  1. QUETIAPINE FUMARATE [Suspect]
     Active Substance: QUETIAPINE FUMARATE
     Route: 065
  2. QUETIAPINE FUMARATE [Suspect]
     Active Substance: QUETIAPINE FUMARATE
     Route: 065
  3. QUETIAPINE FUMARATE [Suspect]
     Active Substance: QUETIAPINE FUMARATE
     Route: 065
  4. QUETIAPINE FUMARATE [Suspect]
     Active Substance: QUETIAPINE FUMARATE
     Route: 065
  5. Folsyra vitabalans [Concomitant]
     Indication: Folate deficiency
     Dosage: 1 MILLIGRAM, QD
     Route: 065
  6. Folsyra vitabalans [Concomitant]
     Dosage: 1 MILLIGRAM, QD
     Route: 065
  7. DEPO-PROVERA [Concomitant]
     Active Substance: MEDROXYPROGESTERONE ACETATE
     Indication: Contraception
     Route: 030
  8. DEPO-PROVERA [Concomitant]
     Active Substance: MEDROXYPROGESTERONE ACETATE
  9. LITHIUM SULFATE [Concomitant]
     Active Substance: LITHIUM SULFATE
     Dosage: 2 PROLONGED-RELEASE TABLETS FOR BREAKFAST AND 2 PROLONGED-RELEASE TABLETS FOR DINNER
     Route: 065
  10. LITHIUM SULFATE [Concomitant]
     Active Substance: LITHIUM SULFATE
     Dosage: 2 PROLONGED-RELEASE TABLETS FOR BREAKFAST AND 2 PROLONGED-RELEASE TABLETS FOR DINNER
     Route: 065
  11. NORFLEX [Concomitant]
     Active Substance: ORPHENADRINE CITRATE
     Indication: Muscle tightness
     Dosage: 100 MILLIGRAM, QD
     Route: 065
  12. NORFLEX [Concomitant]
     Active Substance: ORPHENADRINE CITRATE
     Dosage: 100 MILLIGRAM, QD
     Route: 065
  13. ZOPICLONE [Concomitant]
     Active Substance: ZOPICLONE
     Route: 065
  14. ZOPICLONE [Concomitant]
     Active Substance: ZOPICLONE
     Route: 065
  15. ACETAMINOPHEN [Concomitant]
     Active Substance: ACETAMINOPHEN
     Indication: Pain
     Route: 065
  16. ACETAMINOPHEN [Concomitant]
     Active Substance: ACETAMINOPHEN
     Route: 065

REACTIONS (1)
  - Panic attack [Recovered/Resolved]
